FAERS Safety Report 25754927 (Version 1)
Quarter: 2025Q3

REPORT INFORMATION
  Report Type: Spontaneous
  Country: US (occurrence: US)
  Receive Date: 20250903
  Receipt Date: 20250903
  Transmission Date: 20251020
  Serious: Yes (Life-Threatening, Hospitalization, Congenital Anomaly, Other)
  Sender: RANBAXY
  Company Number: US-SUN PHARMACEUTICAL INDUSTRIES LTD-2025R1-525528

PATIENT

DRUGS (2)
  1. INDOMETHACIN [Suspect]
     Active Substance: INDOMETHACIN
     Indication: Patent ductus arteriosus
     Route: 064
  2. INDOMETHACIN [Suspect]
     Active Substance: INDOMETHACIN
     Dosage: 100 MILLIGRAM,DAILY , EVERY 24 HOURS
     Route: 064

REACTIONS (3)
  - Ductus arteriosus premature closure [Recovering/Resolving]
  - Collateral circulation [Recovering/Resolving]
  - Foetal exposure during pregnancy [Unknown]
